FAERS Safety Report 9209115 (Version 1)
Quarter: 2013Q2

REPORT INFORMATION
  Report Type: Spontaneous
  Country: US (occurrence: US)
  Receive Date: 20130404
  Receipt Date: 20130404
  Transmission Date: 20140414
  Serious: Yes (Other)
  Sender: FDA-Public Use
  Company Number: PHEH2013US005557

PATIENT
  Sex: Male

DRUGS (4)
  1. ARCAPTA [Suspect]
     Indication: EMPHYSEMA
     Dosage: UNK
  2. SPIRIVA [Concomitant]
     Dosage: UNK UKN, UNK
  3. ALBUTEROL [Concomitant]
     Dosage: UNK UKN, UNK
  4. NASONEX [Concomitant]
     Dosage: UNK UKN, UNK

REACTIONS (3)
  - Neoplasm malignant [Unknown]
  - Chronic obstructive pulmonary disease [Unknown]
  - Oxygen consumption increased [Unknown]
